FAERS Safety Report 5341251-1 (Version None)
Quarter: 2007Q2

REPORT INFORMATION
  Report Type: 
  Country: None (occurrence: None)
  Receive Date: 20070404
  Receipt Date: 20061220
  Transmission Date: 20071010
  Serious: Yes (Other)
  Sender: FDA-Public Use
  Company Number: 2006155296

PATIENT
  Age: 17 Year
  Sex: Female

DRUGS (1)
  1. GEODON [Suspect]
     Indication: ABNORMAL BEHAVIOUR
     Dosage: 80 MG (40 MG, 2 IN 1 D)
     Dates: start: 20050101

REACTIONS (5)
  - LARYNGOSPASM [None]
  - NASOPHARYNGITIS [None]
  - PARAESTHESIA ORAL [None]
  - RETCHING [None]
  - VOMITING [None]
